FAERS Safety Report 5567252-6 (Version None)
Quarter: 2007Q4

REPORT INFORMATION
  Report Type: 
  Country: None (occurrence: None)
  Receive Date: 20071219
  Receipt Date: 20071218
  Transmission Date: 20080405
  Serious: No
  Sender: FDA-Public Use
  Company Number: US-BOEHRINGER INGELHEIM PHARMACEUTICALS, INC.-2007-BP-23835BP

PATIENT
  Age: 81 Year
  Sex: Female

DRUGS (5)
  1. CATAPRES-TTS-1 [Suspect]
     Indication: HYPERTENSION
     Route: 061
     Dates: start: 20070919
  2. ASPIRIN [Concomitant]
  3. PLAVIX [Concomitant]
  4. BP MEDICATION [Concomitant]
     Indication: BLOOD PRESSURE
  5. STOMACH MEDICATION [Concomitant]
     Indication: GASTRIC DISORDER

REACTIONS (2)
  - APPLICATION SITE DISCHARGE [None]
  - APPLICATION SITE URTICARIA [None]
